FAERS Safety Report 9866385 (Version 2)
Quarter: 2014Q1

REPORT INFORMATION
  Report Type: Spontaneous
  Country: US (occurrence: US)
  Receive Date: 20140203
  Receipt Date: 20140205
  Transmission Date: 20141002
  Serious: No
  Sender: FDA-Public Use
  Company Number: US-009507513-1402USA000160

PATIENT
  Age: 21 Year
  Sex: Female
  Weight: 63.49 kg

DRUGS (1)
  1. NEXPLANON [Suspect]
     Indication: CONTRACEPTION
     Dosage: INSERTED ON LEFT ARM
     Route: 059
     Dates: start: 20130129

REACTIONS (1)
  - Device breakage [Not Recovered/Not Resolved]
